FAERS Safety Report 12299828 (Version 1)
Quarter: 2016Q2

REPORT INFORMATION
  Report Type: Spontaneous
  Country: BR (occurrence: BR)
  Receive Date: 20160425
  Receipt Date: 20160425
  Transmission Date: 20160815
  Serious: Yes (Other)
  Sender: FDA-Public Use
  Company Number: BR-PFIZER INC-2016225474

PATIENT
  Sex: Female

DRUGS (1)
  1. FRONTAL [Suspect]
     Active Substance: ALPRAZOLAM
     Indication: HYPERTENSION
     Dosage: UNK

REACTIONS (6)
  - Hypertension [Unknown]
  - Cerebrovascular accident [Unknown]
  - Somnolence [Recovered/Resolved]
  - Haemorrhage [Unknown]
  - Tremor [Unknown]
  - Panic disorder [Unknown]
